FAERS Safety Report 7802925-3 (Version None)
Quarter: 2011Q4

REPORT INFORMATION
  Report Type: 
  Country: None (occurrence: None)
  Receive Date: 20111007
  Receipt Date: 20110929
  Transmission Date: 20120403
  Serious: Yes (Other)
  Sender: FDA-Public Use
  Company Number: US-ELI_LILLY_AND_COMPANY-US201110000529

PATIENT
  Sex: Male

DRUGS (5)
  1. EFFIENT [Suspect]
     Indication: STENT PLACEMENT
     Dosage: 60 MG, LOADING DOSE
     Dates: start: 20110928
  2. EFFIENT [Suspect]
     Dosage: 10 MG, MAINTENANCE DOSE
     Dates: start: 20110901
  3. ASPIRIN [Concomitant]
     Dosage: 325 MG, UNK
     Dates: start: 20110928
  4. ASPIRIN [Concomitant]
     Dosage: 81 MG, UNK
  5. PLAVIX [Concomitant]
     Dosage: 300 MG, UNK
     Dates: start: 20110928

REACTIONS (3)
  - DEVICE OCCLUSION [None]
  - DRUG INEFFECTIVE [None]
  - HAEMORRHAGE [None]
